FAERS Safety Report 4595020-0 (Version None)
Quarter: 2005Q1

REPORT INFORMATION
  Report Type: 
  Country: None (occurrence: None)
  Receive Date: 20050224
  Receipt Date: 20031027
  Transmission Date: 20050727
  Serious: Yes (Hospitalization)
  Sender: FDA-Public Use
  Company Number: GXKR2003GB00629

PATIENT
  Age: 74 Year
  Sex: Female

DRUGS (5)
  1. TRIMETHORPRIM [Suspect]
     Indication: URINARY TRACT INFECTION
     Dosage: 200 MG, BID, ORAL
     Route: 048
     Dates: start: 20031007, end: 20031009
  2. BENDROFLUAZIDE (BENDROFLUMETHIAZIDE) [Concomitant]
  3. AMLODIPINE               (AMLODIPINE) [Concomitant]
  4. CO-PROXAMOL [Concomitant]
  5. GAVISCON ADVANCE [Concomitant]

REACTIONS (2)
  - CONFUSIONAL STATE [None]
  - RASH ERYTHEMATOUS [None]
